FAERS Safety Report 18940345 (Version 1)
Quarter: 2021Q1

REPORT INFORMATION
  Report Type: Spontaneous
  Country: CA (occurrence: CA)
  Receive Date: 20210225
  Receipt Date: 20210225
  Transmission Date: 20210420
  Serious: Yes (Death)
  Sender: FDA-Public Use
  Company Number: CA-FRESENIUS KABI-FK202101737

PATIENT
  Age: 54 Year
  Sex: Female
  Weight: 47 kg

DRUGS (1)
  1. TOPOTECAN [Suspect]
     Active Substance: TOPOTECAN HYDROCHLORIDE
     Indication: OVARIAN CANCER
     Dosage: INJECTION CONCENTRATE SOLUTION (DILUTE BEFORE USE)
     Route: 042

REACTIONS (1)
  - Death [Fatal]
